FAERS Safety Report 8406927-8 (Version None)
Quarter: 2012Q2

REPORT INFORMATION
  Report Type: 
  Country: None (occurrence: None)
  Receive Date: 20120604
  Receipt Date: 20120529
  Transmission Date: 20120825
  Serious: Yes (Hospitalization)
  Sender: FDA-Public Use
  Company Number: US-PFIZER INC-2012130210

PATIENT
  Sex: Male

DRUGS (2)
  1. INLYTA [Suspect]
     Dosage: 3 MG, DAILY
     Route: 048
  2. INLYTA [Suspect]
     Indication: RENAL CELL CARCINOMA
     Dosage: 5 MG, 2X/DAY
     Route: 048
     Dates: start: 20120426

REACTIONS (1)
  - CONVULSION [None]
